FAERS Safety Report 12900921 (Version 3)
Quarter: 2018Q2

REPORT INFORMATION
  Report Type: Spontaneous
  Country: GB (occurrence: GB)
  Receive Date: 20161101
  Receipt Date: 20180514
  Transmission Date: 20180711
  Serious: Yes (Congenital Anomaly, Other)
  Sender: FDA-Public Use
  Company Number: GB-ELI_LILLY_AND_COMPANY-GB201610009579

PATIENT
  Sex: Female

DRUGS (12)
  1. CITALOPRAM [Suspect]
     Active Substance: CITALOPRAM HYDROBROMIDE
     Indication: SCHIZOPHRENIA
     Dosage: UNK, UNKNOWN
     Route: 064
  2. ARIPIPRAZOLE. [Suspect]
     Active Substance: ARIPIPRAZOLE
     Indication: SCHIZOPHRENIA
     Dosage: UNK, UNKNOWN
     Route: 064
  3. INSULIN [Suspect]
     Active Substance: INSULIN NOS
     Indication: BLOOD GLUCOSE ABNORMAL
     Dosage: UNK, UNKNOWN
     Route: 064
  4. OLANZAPINE. [Suspect]
     Active Substance: OLANZAPINE
     Indication: SCHIZOPHRENIA
     Dosage: 1 DF, UNKNOWN
     Route: 064
  5. CITALOPRAM [Suspect]
     Active Substance: CITALOPRAM HYDROBROMIDE
     Indication: SCHIZOPHRENIA
     Dosage: UNK, UNKNOWN
     Route: 064
  6. SIMVASTATIN. [Suspect]
     Active Substance: SIMVASTATIN
     Indication: BLOOD CHOLESTEROL INCREASED
     Dosage: UNK UNK, UNKNOWN
     Route: 064
  7. SIMVASTATIN. [Suspect]
     Active Substance: SIMVASTATIN
     Indication: BLOOD CHOLESTEROL INCREASED
     Dosage: UNK UNK, UNKNOWN
     Route: 064
  8. OLANZAPINE. [Suspect]
     Active Substance: OLANZAPINE
     Indication: SCHIZOPHRENIA
     Dosage: 1 DF, UNKNOWN
     Route: 064
  9. ARIPIPRAZOLE. [Suspect]
     Active Substance: ARIPIPRAZOLE
     Indication: SCHIZOPHRENIA
     Dosage: UNK, UNKNOWN
     Route: 064
  10. INSULIN [Suspect]
     Active Substance: INSULIN NOS
     Indication: BLOOD GLUCOSE ABNORMAL
     Dosage: UNK, UNKNOWN
     Route: 064
  11. INSULIN [Suspect]
     Active Substance: INSULIN NOS
     Indication: PRODUCT USED FOR UNKNOWN INDICATION
  12. INSULIN [Suspect]
     Active Substance: INSULIN NOS
     Indication: PRODUCT USED FOR UNKNOWN INDICATION

REACTIONS (6)
  - Microphthalmos [Unknown]
  - Visual impairment [Unknown]
  - Scleroderma [Unknown]
  - Retinal coloboma [Unknown]
  - Exposure during pregnancy [Recovered/Resolved]
  - Iris coloboma [Unknown]
